FAERS Safety Report 6511831-6 (Version None)
Quarter: 2009Q4

REPORT INFORMATION
  Report Type: 
  Country: None (occurrence: None)
  Receive Date: 20091222
  Receipt Date: 20091210
  Transmission Date: 20100525
  Serious: Yes (Hospitalization)
  Sender: FDA-Public Use
  Company Number: PHHY2009GB50495

PATIENT
  Sex: Male

DRUGS (1)
  1. CLOZARIL [Suspect]
     Indication: SCHIZOPHRENIA
     Dosage: 150 MG + 250 MG/DAY
     Dates: start: 20031219

REACTIONS (6)
  - DEPRESSION [None]
  - EATING DISORDER [None]
  - LOWER RESPIRATORY TRACT INFECTION [None]
  - SEDATION [None]
  - SOMNOLENCE [None]
  - TREATMENT NONCOMPLIANCE [None]
